FAERS Safety Report 11444455 (Version 4)
Quarter: 2015Q4

REPORT INFORMATION
  Report Type: Report from Study
  Country: US (occurrence: US)
  Receive Date: 20150902
  Receipt Date: 20151230
  Transmission Date: 20160304
  Serious: Yes (Other)
  Sender: FDA-Public Use
  Company Number: US-ALEXION-A201503300

PATIENT
  Sex: Male

DRUGS (1)
  1. SOLIRIS [Suspect]
     Active Substance: ECULIZUMAB
     Indication: PAROXYSMAL NOCTURNAL HAEMOGLOBINURIA
     Dosage: UNK
     Route: 042

REACTIONS (7)
  - Fatigue [Recovered/Resolved]
  - Haptoglobin decreased [Unknown]
  - Blood lactate dehydrogenase increased [Unknown]
  - Haematocrit decreased [Unknown]
  - Renal cyst [Unknown]
  - Haemolysis [Unknown]
  - Nausea [Unknown]

NARRATIVE: CASE EVENT DATE: 20150824
